FAERS Safety Report 5231452-5 (Version None)
Quarter: 2007Q1

REPORT INFORMATION
  Report Type: 
  Country: None (occurrence: None)
  Receive Date: 20070206
  Receipt Date: 20070205
  Transmission Date: 20070707
  Serious: Yes (Other)
  Sender: FDA-Public Use
  Company Number: US-SHR-US-2006-041279

PATIENT
  Age: 45 Year
  Sex: Female
  Weight: 49.887 kg

DRUGS (1)
  1. YASMIN [Suspect]
     Indication: ORAL CONTRACEPTION
     Dosage: 1 TAB(S), 1X/DAY
     Route: 048
     Dates: start: 20010101, end: 20070102

REACTIONS (3)
  - ANGIOEDEMA [None]
  - BLOOD THYROID STIMULATING HORMONE DECREASED [None]
  - THYROXINE INCREASED [None]
